FAERS Safety Report 4264756-3 (Version None)
Quarter: 2004Q1

REPORT INFORMATION
  Report Type: 
  Country: None (occurrence: None)
  Receive Date: 20040106
  Receipt Date: 20031212
  Transmission Date: 20041129
  Serious: Yes (Death, Other)
  Sender: FDA-Public Use
  Company Number: PHEH2003US11404

PATIENT
  Age: 54 Year
  Sex: Female
  Weight: 117 kg

DRUGS (8)
  1. CLOZARIL [Suspect]
     Indication: SCHIZOAFFECTIVE DISORDER
     Dosage: 100 MG, QID
     Route: 048
     Dates: start: 19980101
  2. PROLIXIN [Concomitant]
  3. ESKALITH [Concomitant]
  4. SEROQUEL [Concomitant]
  5. GABITRIL                                /SCH/ [Concomitant]
  6. PAXIL [Concomitant]
  7. COGENTIN                                /UNK/ [Concomitant]
  8. BENADRYL ^ACHE^ [Concomitant]

REACTIONS (7)
  - ARRHYTHMIA [None]
  - ARTERIOSCLEROSIS [None]
  - BRONCHOPNEUMONIA [None]
  - HYPERPHAGIA [None]
  - NAUSEA [None]
  - PULMONARY VALVE STENOSIS [None]
  - VOMITING [None]
